FAERS Safety Report 5036366-1 (Version None)
Quarter: 2006Q2

REPORT INFORMATION
  Report Type: 
  Country: None (occurrence: None)
  Receive Date: 20060601
  Receipt Date: 20060424
  Transmission Date: 20061013
  Serious: No
  Sender: FDA-Public Use
  Company Number: US200604003751

PATIENT
  Age: 61 Year
  Sex: Female

DRUGS (6)
  1. CYMBALTA [Suspect]
     Indication: NEUROPATHY
     Dosage: 30 MG
     Dates: start: 20060422
  2. LIPITOR [Concomitant]
  3. NEXIUM [Concomitant]
  4. PREGABALIN (PREGABALIN) [Concomitant]
  5. LANTUS [Concomitant]
  6. HUMALOG [Concomitant]

REACTIONS (3)
  - GASTRITIS [None]
  - HYPOAESTHESIA [None]
  - INSOMNIA [None]
